FAERS Safety Report 7504302-1 (Version None)
Quarter: 2011Q2

REPORT INFORMATION
  Report Type: 
  Country: None (occurrence: None)
  Receive Date: 20110404
  Receipt Date: 20101007
  Transmission Date: 20111010
  Serious: Yes (Other)
  Sender: FDA-Public Use
  Company Number: 011491

PATIENT
  Age: 9 Year

DRUGS (2)
  1. CYCLOPHOSPHAMIDE [Concomitant]
  2. BUSULFEX [Suspect]
     Indication: STEM CELL TRANSPLANT
     Dosage: 5 MG/KG

REACTIONS (1)
  - CHRONIC GRAFT VERSUS HOST DISEASE [None]
